FAERS Safety Report 9119417 (Version 1)
Quarter: 2013Q1

REPORT INFORMATION
  Report Type: Spontaneous
  Country: US (occurrence: None)
  Receive Date: 20130222
  Receipt Date: 20130222
  Transmission Date: 20140127
  Serious: No
  Sender: FDA-Public Use
  Company Number: None

PATIENT
  Age: 58 Year
  Sex: Female
  Weight: 58.97 kg

DRUGS (1)
  1. HYOSCYAMINE [Suspect]
     Indication: IRRITABLE BOWEL SYNDROME
     Dosage: 0.125 MG  Q4H PRN  SUBLINGUAL
     Route: 060
     Dates: start: 200101

REACTIONS (3)
  - Drug effect delayed [None]
  - Product solubility abnormal [None]
  - Adverse event [None]
